FAERS Safety Report 8117332-6 (Version None)
Quarter: 2012Q1

REPORT INFORMATION
  Report Type: 
  Country: None (occurrence: None)
  Receive Date: 20120206
  Receipt Date: 20120127
  Transmission Date: 20120608
  Serious: Yes (Other)
  Sender: FDA-Public Use
  Company Number: FR-ASTRAZENECA-2012SE03310

PATIENT
  Age: 12365 Day
  Sex: Female
  Weight: 68 kg

DRUGS (4)
  1. DEPAKENE [Concomitant]
  2. QUETIAPINE FUMARATE [Suspect]
     Route: 048
     Dates: start: 20120105, end: 20120109
  3. QUETIAPINE FUMARATE [Suspect]
     Route: 048
     Dates: start: 20120109
  4. QUETIAPINE FUMARATE [Suspect]
     Indication: BIPOLAR I DISORDER
     Route: 048
     Dates: start: 20111201, end: 20120105

REACTIONS (2)
  - FALL [None]
  - DIZZINESS [None]
